FAERS Safety Report 4721879-X (Version None)
Quarter: 2005Q3

REPORT INFORMATION
  Report Type: 
  Country: None (occurrence: None)
  Receive Date: 20050720
  Receipt Date: 20050707
  Transmission Date: 20060218
  Serious: Yes (Disabling)
  Sender: FDA-Public Use
  Company Number: 2005FR-00120

PATIENT
  Age: 29 Year
  Sex: Female
  Weight: 68 kg

DRUGS (2)
  1. FLUOXETINE [Suspect]
     Indication: STRESS
     Dosage: 20 MG, ORAL
     Route: 048
     Dates: start: 20050602, end: 20050610
  2. DEPO-PROVERA [Concomitant]

REACTIONS (2)
  - DERMATITIS ALLERGIC [None]
  - POLYARTHRITIS [None]
